FAERS Safety Report 16078628 (Version 1)
Quarter: 2019Q1

REPORT INFORMATION
  Report Type: Report from Study
  Country: BR (occurrence: BR)
  Receive Date: 20190315
  Receipt Date: 20190315
  Transmission Date: 20190418
  Serious: Yes (Hospitalization)
  Sender: FDA-Public Use
  Company Number: BR-BAYER-2018-120626

PATIENT
  Sex: Female
  Weight: 46 kg

DRUGS (1)
  1. YAZ [Suspect]
     Active Substance: DROSPIRENONE\ETHINYL ESTRADIOL

REACTIONS (7)
  - Dyspnoea [Recovered/Resolved]
  - Fatigue [Recovered/Resolved]
  - Pulmonary pain [Recovering/Resolving]
  - Pulmonary infarction [None]
  - Deep vein thrombosis [Recovered/Resolved]
  - Pulmonary necrosis [Recovering/Resolving]
  - Pulmonary embolism [Recovered/Resolved]
